FAERS Safety Report 13012958 (Version 1)
Quarter: 2016Q4

REPORT INFORMATION
  Report Type: Spontaneous
  Country: US (occurrence: US)
  Receive Date: 20161208
  Receipt Date: 20161208
  Transmission Date: 20170207
  Serious: No
  Sender: FDA-Public Use
  Company Number: None

PATIENT
  Age: 74 Year
  Sex: Male
  Weight: 81 kg

DRUGS (2)
  1. LOSARTAN. [Concomitant]
     Active Substance: LOSARTAN
  2. STREPSILS ORIGINAL LOZENGES RECKITT BENCKISER HEALTHCARE [Suspect]
     Active Substance: AMYLMETACRESOL\DICHLOROBENZYL ALCOHOL
     Indication: OROPHARYNGEAL PAIN
     Dosage: ?          QUANTITY:1 TABLET(S);?
     Route: 048
     Dates: start: 20161205, end: 20161205

REACTIONS (7)
  - Oral candidiasis [None]
  - Drug hypersensitivity [None]
  - Oral pain [None]
  - Tongue coated [None]
  - Oropharyngeal pain [None]
  - Glossodynia [None]
  - Dysphagia [None]
